FAERS Safety Report 5317419-7 (Version None)
Quarter: 2007Q2

REPORT INFORMATION
  Report Type: 
  Country: None (occurrence: None)
  Receive Date: 20070504
  Receipt Date: 20070504
  Transmission Date: 20071010
  Serious: Yes (Life-Threatening)
  Sender: FDA-Public Use
  Company Number: None

PATIENT
  Age: 69 Year
  Sex: Female
  Weight: 85.2762 kg

DRUGS (9)
  1. BYETTA [Suspect]
     Indication: DIABETES MELLITUS
     Dosage: USE 1 INJECTION UNDER THE SKIN TWICE A DAY
     Route: 058
     Dates: start: 20061001
  2. OMEPRAZOLE [Concomitant]
  3. TOPROL-XL [Concomitant]
  4. LANTUS [Concomitant]
  5. ACTOS [Concomitant]
  6. SYNTHROID [Concomitant]
  7. CRESTOR [Concomitant]
  8. AMBIEN CR [Concomitant]
  9. HYDROCHLOROTHIAZIDE [Concomitant]

REACTIONS (5)
  - ACCIDENTAL OVERDOSE [None]
  - DEVICE MALFUNCTION [None]
  - DYSPNOEA [None]
  - HYPOGLYCAEMIA [None]
  - MEDICATION ERROR [None]
